FAERS Safety Report 4451246-8 (Version None)
Quarter: 2004Q3

REPORT INFORMATION
  Report Type: 
  Country: None (occurrence: None)
  Receive Date: 20040913
  Receipt Date: 20040713
  Transmission Date: 20050211
  Serious: No
  Sender: FDA-Public Use
  Company Number: 2004-BP-05615BP

PATIENT
  Sex: Female

DRUGS (3)
  1. SPIRIVA [Suspect]
     Indication: CHRONIC OBSTRUCTIVE AIRWAYS DISEASE
     Dosage: 18 MCG (18 MCG), IH
     Route: 055
     Dates: start: 20040706
  2. CENTRUM SILVER (CENTRUM SILVER) [Concomitant]
  3. COMBIVENT [Concomitant]

REACTIONS (1)
  - FLATULENCE [None]
